FAERS Safety Report 15803441 (Version 1)
Quarter: 2019Q1

REPORT INFORMATION
  Report Type: Spontaneous
  Country: US (occurrence: US)
  Receive Date: 20190109
  Receipt Date: 20190109
  Transmission Date: 20190417
  Serious: Yes (Hospitalization)
  Sender: FDA-Public Use
  Company Number: US-MYLANLABS-2018M1097674

PATIENT
  Age: 52 Year
  Sex: Male

DRUGS (16)
  1. LISINOPRIL. [Concomitant]
     Active Substance: LISINOPRIL
     Indication: HYPERTENSION
     Route: 065
  2. METOCLOPRAMIDE. [Concomitant]
     Active Substance: METOCLOPRAMIDE
     Route: 042
  3. DEXAMETHASONE. [Concomitant]
     Active Substance: DEXAMETHASONE
     Dosage: ADMINISTERED AT 4:45 PM
     Route: 042
  4. LIDOCAINE. [Concomitant]
     Active Substance: LIDOCAINE
     Dosage: TOTAL OF 9 ML OF 2% LIDOCAINE WITH 1:100,000 EPINEPHRINE WAS ADMINISTERED
     Route: 065
  5. DESFLURANE. [Suspect]
     Active Substance: DESFLURANE
     Dosage: FLOW RATE OF DESFLURANE WAS DECREASED TO 5.5% BY 4:15 PM
     Route: 065
  6. MIDAZOLAM [Concomitant]
     Active Substance: MIDAZOLAM HYDROCHLORIDE
     Route: 042
  7. ROCURONIUM [Suspect]
     Active Substance: ROCURONIUM BROMIDE
     Dosage: RECEIVED AT AROUND 4:10 PM
     Route: 042
  8. DESFLURANE. [Suspect]
     Active Substance: DESFLURANE
     Indication: MAINTENANCE OF ANAESTHESIA
     Dosage: FLOW RATE 6.0%; FORMULATION: GAS
     Route: 065
  9. FENTANYL. [Concomitant]
     Active Substance: FENTANYL
     Route: 042
  10. SUCCINYLCHOLINE                    /00057701/ [Suspect]
     Active Substance: SUCCINYLCHOLINE
     Indication: PRODUCT USED FOR UNKNOWN INDICATION
     Route: 042
  11. METFORMIN [Concomitant]
     Active Substance: METFORMIN HYDROCHLORIDE
     Indication: TYPE 2 DIABETES MELLITUS
     Route: 065
  12. ROCURONIUM [Suspect]
     Active Substance: ROCURONIUM BROMIDE
     Indication: MUSCLE RELAXANT THERAPY
     Dosage: 5 MILLIGRAM
     Route: 042
  13. RANITIDINE. [Concomitant]
     Active Substance: RANITIDINE
     Route: 042
  14. PROPOFOL. [Concomitant]
     Active Substance: PROPOFOL
     Route: 042
  15. CEFAZOLIN [Concomitant]
     Active Substance: CEFAZOLIN
     Indication: ANTIBIOTIC THERAPY
     Dosage: ADMINISTERED AT 4:20 PM
     Route: 042
  16. EPINEPHRINE. [Concomitant]
     Active Substance: EPINEPHRINE
     Dosage: TOTAL OF 9 ML OF 2% LIDOCAINE WITH 1:100,000 EPINEPHRINE WAS ADMINISTERED
     Route: 065

REACTIONS (3)
  - Hyperthermia malignant [Recovered/Resolved]
  - Rhabdomyolysis [Recovering/Resolving]
  - Hyperkalaemia [Unknown]
